FAERS Safety Report 6115017-9 (Version None)
Quarter: 2009Q1

REPORT INFORMATION
  Report Type: 
  Country: None (occurrence: None)
  Receive Date: 20090311
  Receipt Date: 20081008
  Transmission Date: 20090719
  Serious: Yes (Other)
  Sender: FDA-Public Use
  Company Number: US200809006109

PATIENT
  Age: 77 Year
  Sex: Female

DRUGS (1)
  1. GEMZAR [Suspect]
     Indication: BREAST CANCER
     Dosage: 800 MG/M2, OTHER
     Dates: start: 20080811, end: 20080901

REACTIONS (3)
  - BLOOD CREATININE INCREASED [None]
  - CHOLESTASIS [None]
  - MALIGNANT NEOPLASM PROGRESSION [None]
